FAERS Safety Report 23341708 (Version 1)
Quarter: 2023Q4

REPORT INFORMATION
  Report Type: Spontaneous
  Country: US (occurrence: US)
  Receive Date: 20231227
  Receipt Date: 20231227
  Transmission Date: 20240110
  Serious: Yes (Other)
  Sender: FDA-Public Use
  Company Number: US-BAYER-2023A181717

PATIENT
  Age: 26 Year
  Sex: Female

DRUGS (1)
  1. NEXAVAR [Suspect]
     Active Substance: SORAFENIB
     Indication: Malignant connective tissue neoplasm
     Dosage: UNK

REACTIONS (3)
  - Gait disturbance [None]
  - Blister [None]
  - Off label use [None]
